FAERS Safety Report 11835394 (Version 6)
Quarter: 2016Q1

REPORT INFORMATION
  Report Type: Spontaneous
  Country: US (occurrence: US)
  Receive Date: 20151215
  Receipt Date: 20160127
  Transmission Date: 20160525
  Serious: Yes (Hospitalization)
  Sender: FDA-Public Use
  Company Number: CHPA2015US014660

PATIENT
  Sex: Female
  Weight: 54.42 kg

DRUGS (3)
  1. VOLTAREN [Suspect]
     Active Substance: DICLOFENAC SODIUM
     Indication: NERVE COMPRESSION
  2. VOLTAREN [Suspect]
     Active Substance: DICLOFENAC SODIUM
     Indication: ARTHRALGIA
  3. VOLTAREN [Suspect]
     Active Substance: DICLOFENAC SODIUM
     Indication: VULVAL DISORDER
     Dosage: UNK
     Route: 061
     Dates: end: 2015

REACTIONS (8)
  - Fall [Unknown]
  - Loss of consciousness [Recovered/Resolved]
  - Product use issue [Unknown]
  - Drug administered at inappropriate site [Unknown]
  - Nerve compression [Not Recovered/Not Resolved]
  - Bone cyst [Not Recovered/Not Resolved]
  - Drug ineffective for unapproved indication [Unknown]
  - Neck pain [Not Recovered/Not Resolved]

NARRATIVE: CASE EVENT DATE: 2015
